FAERS Safety Report 22598458 (Version 1)
Quarter: 2023Q2

REPORT INFORMATION
  Report Type: Spontaneous
  Country: US (occurrence: US)
  Receive Date: 20230614
  Receipt Date: 20230614
  Transmission Date: 20230722
  Serious: Yes (Hospitalization)
  Sender: FDA-Public Use
  Company Number: US-002147023-NVSC2023US132016

PATIENT
  Age: 65 Year
  Sex: Female

DRUGS (2)
  1. KISQALI FEMARA CO-PACK [Suspect]
     Active Substance: LETROZOLE\RIBOCICLIB
     Indication: Neoplasm malignant
     Dosage: 600 MG, TAKE 3
     Route: 048
     Dates: start: 20211220
  2. KISQALI FEMARA CO-PACK [Suspect]
     Active Substance: LETROZOLE\RIBOCICLIB
     Indication: Neoplasm malignant
     Dosage: 600 MG, TAKE 3
     Route: 048
     Dates: start: 20211220

REACTIONS (4)
  - Fall [Recovering/Resolving]
  - Fibula fracture [Recovering/Resolving]
  - Joint dislocation [Recovering/Resolving]
  - Urinary tract infection [Recovering/Resolving]

NARRATIVE: CASE EVENT DATE: 20230514
